FAERS Safety Report 8437111-X (Version None)
Quarter: 2012Q2

REPORT INFORMATION
  Report Type: 
  Country: None (occurrence: None)
  Receive Date: 20120614
  Receipt Date: 20120427
  Transmission Date: 20120825
  Serious: Yes (Hospitalization, Other)
  Sender: FDA-Public Use
  Company Number: US-AMGEN-USASP2012017542

PATIENT
  Age: 82 Year
  Sex: Female

DRUGS (4)
  1. PROLIA [Suspect]
     Indication: OSTEOPOROSIS POSTMENOPAUSAL
     Dosage: 60 MG, Q6MO
     Dates: start: 20120221
  2. CALCIUM [Concomitant]
  3. LASIX [Concomitant]
     Indication: OEDEMA PERIPHERAL
  4. VITAMIN D [Concomitant]

REACTIONS (2)
  - HYPOCALCAEMIA [None]
  - ASTHENIA [None]
